FAERS Safety Report 9248597 (Version 6)
Quarter: 2016Q2

REPORT INFORMATION
  Report Type: Spontaneous
  Country: US (occurrence: US)
  Receive Date: 20130423
  Receipt Date: 20160414
  Transmission Date: 20160815
  Serious: Yes (Hospitalization)
  Sender: FDA-Public Use
  Company Number: US-PFIZER INC-2012268307

PATIENT
  Age: 67 Year
  Sex: Female
  Weight: 108 kg

DRUGS (32)
  1. LORAZEPAM. [Concomitant]
     Active Substance: LORAZEPAM
     Dosage: 0.5 MG, TAKE 1-2 TABLETS EVERY NIGHT AT BEDTIME)
     Route: 048
  2. K-TAB [Concomitant]
     Active Substance: POTASSIUM CHLORIDE
     Dosage: 20 MEQ, 1X/DAY (10MEQ, 2 TABS)
     Route: 048
  3. HYDRALAZINE [Concomitant]
     Active Substance: HYDRALAZINE HYDROCHLORIDE
     Dosage: 50 MG, 4X/DAY
     Route: 048
  4. LASIX [Concomitant]
     Active Substance: FUROSEMIDE
     Dosage: 40 MG, DAILY (OR AS DIRECTED)
     Route: 048
  5. BACTROBAN [Concomitant]
     Active Substance: MUPIROCIN\MUPIROCIN CALCIUM
     Dosage: 2 %, 2X/DAY
     Route: 061
  6. SYNTHROID [Concomitant]
     Active Substance: LEVOTHYROXINE SODIUM
     Dosage: 112 UG, DAILY
     Route: 048
  7. MAXZIDE [Concomitant]
     Active Substance: HYDROCHLOROTHIAZIDE\TRIAMTERENE
     Dosage: HYDROCHLOROTHIAZIDE 37.5 MG, TRIAMTERENE 25 MG) DAILY
     Route: 048
  8. ASPIRIN. [Concomitant]
     Active Substance: ASPIRIN
     Dosage: 81 MG, 1X/DAY
     Route: 048
  9. ALIGN [Concomitant]
     Active Substance: BIFIDOBACTERIUM LONGUM SUBSP. INFANTIS
     Dosage: 1 DF, 1X/DAY
     Route: 048
  10. CORTISONE [Concomitant]
     Active Substance: CORTISONE\HYDROCORTISONE
     Dosage: 2.5 %, 2X/DAY AS NEEDED
     Route: 061
  11. VOLTAREN [Concomitant]
     Active Substance: DICLOFENAC SODIUM
     Dosage: 75 MG, AS NEEDED (THREE TIMES PER DAY)
     Route: 048
  12. KEFLEX [Concomitant]
     Active Substance: CEPHALEXIN
     Dosage: 250 MG, 4X/DAY (FOR 5 DAYS)
     Route: 048
  13. AVAPRO [Concomitant]
     Active Substance: IRBESARTAN
     Dosage: 300 MG, 1X/DAY
     Route: 048
  14. ALBUTEROL HFA [Concomitant]
     Active Substance: ALBUTEROL SULFATE
     Dosage: (108 (90 BASE) MCG/ACT IN AERS ,1-2 PUFFS INHALE EVERY 4 HOURS AS NEEDED)
     Route: 055
  15. NASONEX [Concomitant]
     Active Substance: MOMETASONE FUROATE
     Dosage: 50 UG, 1X/DAY
     Route: 045
  16. KENALOG [Concomitant]
     Active Substance: TRIAMCINOLONE ACETONIDE
     Dosage: 0.1 %, 2X/DAY AS NEEDED
     Route: 061
  17. EFFEXOR XR [Suspect]
     Active Substance: VENLAFAXINE HYDROCHLORIDE
     Indication: HOT FLUSH
  18. SYMBICORT [Concomitant]
     Active Substance: BUDESONIDE\FORMOTEROL FUMARATE DIHYDRATE
     Dosage: (BUDESONIDE 160 MCG, FORMOTEROL FUMARATE 4.5 MCG,  2 PUFFS), 2X/DAY
     Route: 055
  19. VITAMIN D3 [Concomitant]
     Active Substance: CHOLECALCIFEROL
     Dosage: 5000 IU, 1X/DAY
     Route: 048
  20. CRESTOR [Concomitant]
     Active Substance: ROSUVASTATIN CALCIUM
     Dosage: 5 MG, 1X/DAY (EVERY NIGHT AT BED TIME)
     Route: 048
  21. NORCO [Concomitant]
     Active Substance: ACETAMINOPHEN\HYDROCODONE BITARTRATE
     Indication: PAIN
     Dosage: UNK, AS NEEDED (HYDROCODONE BITARTRATE 5 MG, PARACETAMOL 325 MG) (ONE UPTO TO TWO PER DAY ONLY)
     Route: 048
  22. CENTRUM SILVER [Concomitant]
     Active Substance: MINERALS\VITAMINS
     Dosage: 1 DF, 1X/DAY
     Route: 048
  23. PATANASE [Concomitant]
     Active Substance: OLOPATADINE HYDROCHLORIDE
     Dosage: 0.6 %, 1X/DAY
     Route: 045
  24. OMEGA 3 FISH OILS [Concomitant]
     Active Substance: OMEGA-3 FATTY ACIDS
     Dosage: 1200 MG, 1X/DAY
     Route: 048
  25. LOPRESSOR [Concomitant]
     Active Substance: METOPROLOL TARTRATE
     Dosage: 50 MG, 2X/DAY
     Route: 048
  26. VITAMIN B12 [Concomitant]
     Active Substance: CYANOCOBALAMIN
     Dosage: 1000 UG, 1X/DAY
     Route: 048
  27. EFFEXOR XR [Suspect]
     Active Substance: VENLAFAXINE HYDROCHLORIDE
     Indication: DEPRESSION
     Dosage: 75 MG, 1X/DAY
     Route: 048
  28. PROTONIX [Suspect]
     Active Substance: PANTOPRAZOLE SODIUM
     Indication: GASTROOESOPHAGEAL REFLUX DISEASE
     Dosage: 40 MG, 2X/DAY (WITH MEALS)
     Route: 048
  29. IRON [Concomitant]
     Active Substance: IRON
     Dosage: 160 MG, 1X/DAY (160 (50 FE) MG PO)
     Route: 048
  30. ULTRAM [Concomitant]
     Active Substance: TRAMADOL HYDROCHLORIDE
     Dosage: 50 MG, 4X/DAY AS NEEDED
     Route: 048
  31. BUDESONIDE W/FORMOTEROL [Concomitant]
     Active Substance: BUDESONIDE\FORMOTEROL
     Dosage: (BUDESONIDE 160 MCG, FORMOTEROL 4.5 MCG, 2 PUFFS), 2X/DAY
     Route: 055
  32. TURMERIC CURCUMIN [Concomitant]
     Active Substance: TURMERIC
     Indication: INFLAMMATION
     Dosage: 500 MG, 2X/DAY
     Route: 048

REACTIONS (2)
  - Arthropathy [Unknown]
  - Body height decreased [Unknown]

NARRATIVE: CASE EVENT DATE: 201211
